FAERS Safety Report 15728334 (Version 1)
Quarter: 2018Q4

REPORT INFORMATION
  Report Type: Report from Study
  Country: CA (occurrence: CA)
  Receive Date: 20181217
  Receipt Date: 20181217
  Transmission Date: 20190205
  Serious: Yes (Other)
  Sender: FDA-Public Use
  Company Number: CA-ROCHE-2142560

PATIENT
  Sex: Female
  Weight: 70.3 kg

DRUGS (8)
  1. SOLU-MEDROL [Concomitant]
     Active Substance: METHYLPREDNISOLONE SODIUM SUCCINATE
     Route: 042
     Dates: start: 20180219
  2. PREDNISONE. [Concomitant]
     Active Substance: PREDNISONE
  3. MESTINON [Concomitant]
     Active Substance: PYRIDOSTIGMINE BROMIDE
  4. RITUXAN [Suspect]
     Active Substance: RITUXIMAB
     Indication: MYASTHENIA GRAVIS
     Dosage: LAST RITUXIMAB DOSE WAS ON 05/MAR/2018??LAST RITUXAN DOSE WAS ON 04/SEP/2018.
     Route: 042
     Dates: start: 20180219
  5. ACETAMINOPHEN. [Concomitant]
     Active Substance: ACETAMINOPHEN
     Route: 048
     Dates: start: 20180219
  6. DIPHENHYDRAMINE HCL [Concomitant]
     Active Substance: DIPHENHYDRAMINE HYDROCHLORIDE
     Route: 048
     Dates: start: 20180219
  7. FERAMAX [Concomitant]
     Active Substance: IRON\POLYSACCHARIDES
     Dosage: DAILY
     Route: 048
  8. MYCOPHENOLATE MOFETIL. [Suspect]
     Active Substance: MYCOPHENOLATE MOFETIL
     Indication: MYASTHENIA GRAVIS
     Route: 065
     Dates: start: 20180215

REACTIONS (9)
  - Rash [Unknown]
  - Drug resistance [Unknown]
  - Drug intolerance [Unknown]
  - Blood iron decreased [Unknown]
  - Weight increased [Unknown]
  - Drug ineffective [Unknown]
  - Allergy to chemicals [Unknown]
  - Intentional product use issue [Unknown]
  - Off label use [Unknown]
